FAERS Safety Report 16996512 (Version 2)
Quarter: 2019Q4

REPORT INFORMATION
  Report Type: Report from Study
  Country: PE (occurrence: PE)
  Receive Date: 20191106
  Receipt Date: 20191227
  Transmission Date: 20200122
  Serious: No
  Sender: FDA-Public Use
  Company Number: PE-EMD SERONO-9115268

PATIENT
  Age: 30 Year
  Sex: Female

DRUGS (1)
  1. REBIF [Suspect]
     Active Substance: INTERFERON BETA-1A
     Indication: MULTIPLE SCLEROSIS
     Route: 058
     Dates: start: 20130123

REACTIONS (4)
  - Dizziness [Unknown]
  - Fall [Unknown]
  - Injection site haemorrhage [Recovering/Resolving]
  - Injection site pain [Recovering/Resolving]

NARRATIVE: CASE EVENT DATE: 201908
